FAERS Safety Report 14166860 (Version 1)
Quarter: 2017Q4

REPORT INFORMATION
  Report Type: Spontaneous
  Country: CN (occurrence: CN)
  Receive Date: 20171107
  Receipt Date: 20171107
  Transmission Date: 20180321
  Serious: Yes (Other)
  Sender: FDA-Public Use
  Company Number: CN-PFIZER INC-2017473510

PATIENT
  Age: 53 Year
  Sex: Female
  Weight: 48.5 kg

DRUGS (3)
  1. AMBROXOL HYDROCHLORIDE [Suspect]
     Active Substance: AMBROXOL HYDROCHLORIDE
     Indication: PNEUMONIA
     Dosage: 45 MG, 2X/DAY
     Route: 041
     Dates: start: 20170911, end: 20170911
  2. A LE XIN [Suspect]
     Active Substance: AZLOCILLIN SODIUM
     Indication: PNEUMONIA
     Dosage: 6 G, 2X/DAY
     Route: 041
     Dates: start: 20170911, end: 20170911
  3. AZITHROMYCIN ANHYDROUS. [Suspect]
     Active Substance: AZITHROMYCIN ANHYDROUS
     Indication: PNEUMONIA
     Dosage: 0.5 G, 1X/DAY
     Route: 041
     Dates: start: 20170911, end: 20170911

REACTIONS (9)
  - Cyanosis [Recovered/Resolved]
  - Heart rate increased [Recovered/Resolved]
  - Seizure [Recovered/Resolved]
  - Hyperpyrexia [Recovered/Resolved]
  - Blood pressure increased [Recovered/Resolved]
  - Oxygen saturation decreased [Recovered/Resolved]
  - Dyspnoea [None]
  - Chills [Recovered/Resolved]
  - Tachypnoea [Recovered/Resolved]

NARRATIVE: CASE EVENT DATE: 20170911
